FAERS Safety Report 18611270 (Version 4)
Quarter: 2021Q4

REPORT INFORMATION
  Report Type: Spontaneous
  Country: US (occurrence: US)
  Receive Date: 20201214
  Receipt Date: 20211209
  Transmission Date: 20220303
  Serious: Yes (Disabling, Other)
  Sender: FDA-Public Use
  Company Number: ENDG20-09191

PATIENT
  Sex: Male
  Weight: 68.027 kg

DRUGS (13)
  1. PERCOCET [Suspect]
     Active Substance: ACETAMINOPHEN\OXYCODONE HYDROCHLORIDE
     Indication: Emotional distress
     Dosage: UNK UNKNOWN, UNKNOWN
     Route: 048
     Dates: start: 20080513, end: 20170323
  2. PERCOCET [Suspect]
     Active Substance: ACETAMINOPHEN\OXYCODONE HYDROCHLORIDE
     Indication: Arthralgia
  3. PERCOCET [Suspect]
     Active Substance: ACETAMINOPHEN\OXYCODONE HYDROCHLORIDE
     Indication: Pain
  4. ENDOCET [Suspect]
     Active Substance: ACETAMINOPHEN\OXYCODONE HYDROCHLORIDE
     Indication: Product used for unknown indication
     Dosage: UNK UNKNOWN, UNKNOWN
     Route: 065
  5. OXYCONTIN [Suspect]
     Active Substance: OXYCODONE HYDROCHLORIDE
     Indication: Emotional distress
     Dosage: 80 MG, DAILY
     Route: 048
     Dates: start: 201203, end: 201703
  6. OXYCONTIN [Suspect]
     Active Substance: OXYCODONE HYDROCHLORIDE
     Indication: Arthralgia
  7. OXYCONTIN [Suspect]
     Active Substance: OXYCODONE HYDROCHLORIDE
     Indication: Anxiety
  8. OXYCODONE [Suspect]
     Active Substance: OXYCODONE
     Indication: Emotional distress
     Dosage: 80 MG, DAILY
     Route: 048
     Dates: start: 200805, end: 201703
  9. OXYCODONE [Suspect]
     Active Substance: OXYCODONE
     Indication: Arthralgia
  10. OXYCODONE [Suspect]
     Active Substance: OXYCODONE
     Indication: Anxiety
  11. ROXICODONE [Concomitant]
     Active Substance: OXYCODONE HYDROCHLORIDE
     Indication: Anxiety
     Dosage: 90 MG, DAILY
     Route: 048
     Dates: start: 201104, end: 201503
  12. SUBUTEX [Concomitant]
     Active Substance: BUPRENORPHINE HYDROCHLORIDE
     Indication: Anxiety
     Dosage: 8 MG, DAILY
     Route: 048
     Dates: start: 201703
  13. SUBUTON [Concomitant]
     Indication: Product used for unknown indication
     Dosage: UNK UNKNOWN, UNKNOWN
     Route: 065
     Dates: start: 20131113

REACTIONS (4)
  - Mental disorder [Not Recovered/Not Resolved]
  - Weight decreased [Unknown]
  - Syncope [Not Recovered/Not Resolved]
  - Drug dependence [Recovering/Resolving]
